FAERS Safety Report 5576586-0 (Version None)
Quarter: 2007Q4

REPORT INFORMATION
  Report Type: 
  Country: None (occurrence: None)
  Receive Date: 20071228
  Receipt Date: 20071026
  Transmission Date: 20080405
  Serious: No
  Sender: FDA-Public Use
  Company Number: A0691094A

PATIENT
  Age: 4 Year
  Sex: Female

DRUGS (1)
  1. FLOVENT [Suspect]
     Indication: DRUG USE FOR UNKNOWN INDICATION
     Route: 055
     Dates: start: 20070101

REACTIONS (5)
  - ENURESIS [None]
  - INCREASED APPETITE [None]
  - POLLAKIURIA [None]
  - THIRST [None]
  - TREATMENT NONCOMPLIANCE [None]
